FAERS Safety Report 17950689 (Version 21)
Quarter: 2024Q4

REPORT INFORMATION
  Report Type: Report from Study
  Country: CA (occurrence: CA)
  Receive Date: 20200626
  Receipt Date: 20241009
  Transmission Date: 20250115
  Serious: Yes (Other)
  Sender: ROCHE
  Company Number: CA-ROCHE-2220773

PATIENT
  Age: 64 Year
  Sex: Female

DRUGS (14)
  1. OCREVUS [Suspect]
     Active Substance: OCRELIZUMAB
     Indication: Primary progressive multiple sclerosis
     Dosage: 300 MG AT DAY 0 AND 14, THEN 600 MG EVERY 6 MONTH ;ONGOING: YES
     Route: 042
     Dates: start: 20181106
  2. OCREVUS [Suspect]
     Active Substance: OCRELIZUMAB
     Indication: Relapsing-remitting multiple sclerosis
  3. CORTISONE [Suspect]
     Active Substance: CORTISONE
     Indication: Arthralgia
     Dosage: START DATE:- -MAY-2019?ONGOING
     Route: 065
  4. TYLENOL [Concomitant]
     Active Substance: ACETAMINOPHEN
     Indication: Arthralgia
     Dosage: TAKES 6 TABS IN 24 HOURS ;ONGOING: YES
  5. ALENDRONATE [Concomitant]
     Active Substance: ALENDRONATE SODIUM
     Indication: Osteoporosis
     Dosage: YES
  6. ZOPICLONE [Concomitant]
     Active Substance: ZOPICLONE
     Dosage: AT NIGHT ;ONGOING: YES?SLEEP AID
     Dates: start: 2016
  7. VITAMIN C [Concomitant]
     Active Substance: ASCORBIC ACID
     Indication: Product used for unknown indication
     Dosage: ONGOING
  8. ADVIL [Concomitant]
     Active Substance: IBUPROFEN
     Indication: Product used for unknown indication
  9. CHOLECALCIFEROL [Concomitant]
     Active Substance: CHOLECALCIFEROL
     Indication: Product used for unknown indication
  10. CALCIUM [Concomitant]
     Active Substance: CALCIUM
     Indication: Product used for unknown indication
     Dosage: ONGOING
     Dates: start: 201810
  11. TRAMADOL [Concomitant]
     Active Substance: TRAMADOL
     Indication: Pain
  12. SYNTHROID [Concomitant]
     Active Substance: LEVOTHYROXINE SODIUM
     Dosage: ONGOING?FOR THYROID PROBLEM
     Dates: start: 201810
  13. ROSUVASTATIN [Concomitant]
     Active Substance: ROSUVASTATIN
  14. BACLOFEN [Concomitant]
     Active Substance: BACLOFEN

REACTIONS (24)
  - Oropharyngeal pain [Recovering/Resolving]
  - Dysgeusia [Recovering/Resolving]
  - Tooth discolouration [Recovering/Resolving]
  - Fatigue [Not Recovered/Not Resolved]
  - Asthenia [Not Recovered/Not Resolved]
  - Dizziness [Recovered/Resolved]
  - Arthralgia [Not Recovered/Not Resolved]
  - Biliary tract disorder [Recovered/Resolved]
  - Arthropathy [Recovered/Resolved]
  - Infusion related reaction [Recovering/Resolving]
  - Decreased appetite [Unknown]
  - Sinusitis [Recovering/Resolving]
  - Influenza [Recovering/Resolving]
  - Hypoaesthesia [Not Recovered/Not Resolved]
  - Hip fracture [Unknown]
  - Road traffic accident [Unknown]
  - Dizziness [Recovered/Resolved]
  - Nasopharyngitis [Recovered/Resolved]
  - Bronchitis [Recovered/Resolved]
  - Blood cholesterol abnormal [Not Recovered/Not Resolved]
  - White blood cell count increased [Not Recovered/Not Resolved]
  - Headache [Not Recovered/Not Resolved]
  - Depression [Not Recovered/Not Resolved]
  - Balance disorder [Recovered/Resolved]

NARRATIVE: CASE EVENT DATE: 20181120
